FAERS Safety Report 7394996-6 (Version None)
Quarter: 2011Q1

REPORT INFORMATION
  Report Type: 
  Country: None (occurrence: None)
  Receive Date: 20110331
  Receipt Date: 20110331
  Transmission Date: 20110831
  Serious: Yes (Hospitalization)
  Sender: FDA-Public Use
  Company Number: None

PATIENT
  Age: 29 Year
  Sex: Female
  Weight: 95.6 kg

DRUGS (1)
  1. DIVALPROEX [Suspect]
     Indication: BIPOLAR I DISORDER
     Dates: start: 20100901, end: 20110316

REACTIONS (1)
  - PANCREATITIS [None]
